FAERS Safety Report 17861704 (Version 1)
Quarter: 2020Q2

REPORT INFORMATION
  Report Type: Spontaneous
  Country: US (occurrence: US)
  Receive Date: 20200604
  Receipt Date: 20200604
  Transmission Date: 20200714
  Serious: Yes (Hospitalization)
  Sender: FDA-Public Use
  Company Number: US-PERRIGO-20US007619

PATIENT
  Age: 50 Year
  Sex: Female

DRUGS (9)
  1. OMEPRAZOLE. [Suspect]
     Active Substance: OMEPRAZOLE
     Dosage: 40 MG, BID
     Route: 048
  2. NEXIUM [Suspect]
     Active Substance: ESOMEPRAZOLE MAGNESIUM
     Indication: GASTROOESOPHAGEAL REFLUX DISEASE
     Dosage: UNK
     Route: 048
     Dates: start: 20110402, end: 20110711
  3. PREVACID 24 HR [Suspect]
     Active Substance: LANSOPRAZOLE
     Indication: PRODUCT USED FOR UNKNOWN INDICATION
     Dosage: 30 MG, QD
     Route: 048
     Dates: start: 20181003, end: 20181102
  4. OMEPRAZOLE. [Suspect]
     Active Substance: OMEPRAZOLE
     Indication: PRODUCT USED FOR UNKNOWN INDICATION
     Dosage: 20 MG, BID
     Route: 048
     Dates: start: 20170725, end: 20181210
  5. PRILOSEC [Suspect]
     Active Substance: OMEPRAZOLE MAGNESIUM
     Indication: GASTROOESOPHAGEAL REFLUX DISEASE
     Dosage: 20 MG, QD
     Route: 048
     Dates: start: 2011
  6. PANTOPRAZOLE [Suspect]
     Active Substance: PANTOPRAZOLE
     Indication: PRODUCT USED FOR UNKNOWN INDICATION
     Dosage: 40 MG, QD
     Route: 048
     Dates: start: 20180126
  7. OMEPRAZOLE. [Suspect]
     Active Substance: OMEPRAZOLE
     Dosage: 20 MG, QD
     Route: 048
     Dates: start: 20170725, end: 20180704
  8. PANTOPRAZOLE [Suspect]
     Active Substance: PANTOPRAZOLE
     Dosage: 40 MG, QD
     Route: 048
     Dates: start: 20180622, end: 20181223
  9. NEXIUM 24HR [Suspect]
     Active Substance: ESOMEPRAZOLE MAGNESIUM
     Indication: GASTROOESOPHAGEAL REFLUX DISEASE
     Dosage: 20 MG, QD
     Route: 048
     Dates: start: 2011

REACTIONS (22)
  - Nephrolithiasis [Unknown]
  - Renal failure [Unknown]
  - Renal atrophy [Unknown]
  - Nephropathy [Unknown]
  - Dialysis [Unknown]
  - Chronic kidney disease [Not Recovered/Not Resolved]
  - Renal stone removal [Unknown]
  - Renal impairment [Unknown]
  - Nephrolithiasis [Unknown]
  - Renal haemorrhage [Unknown]
  - End stage renal disease [Unknown]
  - Lithotripsy [Unknown]
  - Pyelonephritis [Unknown]
  - Leukocyturia [Unknown]
  - Kidney infection [Unknown]
  - Chronic kidney disease-mineral and bone disorder [Unknown]
  - Dysuria [Unknown]
  - Acute kidney injury [Not Recovered/Not Resolved]
  - Ureterolithiasis [Unknown]
  - Renal injury [Unknown]
  - Kidney fibrosis [Unknown]
  - Renal disorder [Unknown]

NARRATIVE: CASE EVENT DATE: 20170525
